FAERS Safety Report 23333891 (Version 1)
Quarter: 2023Q4

REPORT INFORMATION
  Report Type: Report from Study
  Country: GB (occurrence: GB)
  Receive Date: 20231223
  Receipt Date: 20231223
  Transmission Date: 20240109
  Serious: No
  Sender: FDA-Public Use
  Company Number: GB-002147023-NVSC2021GB265069

PATIENT
  Sex: Female

DRUGS (2)
  1. OMNITROPE [Suspect]
     Active Substance: SOMATROPIN
     Indication: Growth hormone deficiency
     Dosage: 0.7 MG, QD (AS DIRECTED)
     Route: 058
     Dates: start: 20211103
  2. OMNITROPE [Suspect]
     Active Substance: SOMATROPIN
     Indication: Hypopituitarism
     Dosage: 0.90 MG, QD
     Route: 058

REACTIONS (9)
  - Hypoaesthesia [Recovered/Resolved]
  - Asthenia [Unknown]
  - Injection site haemorrhage [Unknown]
  - Decreased appetite [Unknown]
  - Paraesthesia [Unknown]
  - Headache [Unknown]
  - Pyrexia [Unknown]
  - Injection site pain [Unknown]
  - Product dose omission issue [Unknown]
